FAERS Safety Report 6585958-7 (Version None)
Quarter: 2010Q1

REPORT INFORMATION
  Report Type: 
  Country: None (occurrence: None)
  Receive Date: 20100216
  Receipt Date: 20100216
  Transmission Date: 20100710
  Serious: Yes (Other)
  Sender: FDA-Public Use
  Company Number: None

PATIENT
  Age: 77 Year
  Sex: Female
  Weight: 57.6068 kg

DRUGS (1)
  1. AMLODIPINE [Suspect]

REACTIONS (1)
  - DRUG INEFFECTIVE [None]
